FAERS Safety Report 9536685 (Version 1)
Quarter: 2013Q3

REPORT INFORMATION
  Report Type: Spontaneous
  Country: US (occurrence: None)
  Receive Date: 20130918
  Receipt Date: 20130918
  Transmission Date: 20140515
  Serious: No
  Sender: FDA-Public Use
  Company Number: None

PATIENT
  Age: 67 Year
  Sex: Female
  Weight: 74.84 kg

DRUGS (1)
  1. LAMOTRIGINE [Suspect]
     Indication: BIPOLAR I DISORDER
     Route: 048
     Dates: start: 20130722, end: 20130901

REACTIONS (2)
  - Arrhythmia [None]
  - Extrasystoles [None]
